FAERS Safety Report 8853121 (Version 1)
Quarter: 2012Q4

REPORT INFORMATION
  Report Type: 
  Country: SE (occurrence: SE)
  Receive Date: 20121022
  Receipt Date: 20121022
  Transmission Date: 20130627
  Serious: Yes (Other)
  Sender: FDA-Public Use
  Company Number: SE-ASTRAZENECA-2012SE78613

PATIENT
  Age: 70 Year
  Sex: Male

DRUGS (1)
  1. CARBOCAIN [Suspect]
     Indication: ANAESTHESIA
     Dosage: 20 MG/ML
     Route: 065

REACTIONS (2)
  - Hepatitis B [Unknown]
  - Medication error [Unknown]
